FAERS Safety Report 6110777-5 (Version None)
Quarter: 2009Q1

REPORT INFORMATION
  Report Type: 
  Country: None (occurrence: None)
  Receive Date: 20090311
  Receipt Date: 20090224
  Transmission Date: 20090719
  Serious: Yes (Other)
  Sender: FDA-Public Use
  Company Number: PHHY2009MX06713

PATIENT
  Sex: Female

DRUGS (2)
  1. DIOVAN HCT [Suspect]
     Indication: HYPERTENSION
     Dosage: 1 TABLET DAILY
     Dates: start: 20050925
  2. REPAGLINIDE [Concomitant]
     Indication: DIABETES MELLITUS
     Dosage: 1.5 TABLETS PER DAY

REACTIONS (7)
  - DIZZINESS [None]
  - EYE PAIN [None]
  - GLAUCOMA [None]
  - INNER EAR DISORDER [None]
  - POOR PERIPHERAL CIRCULATION [None]
  - TINNITUS [None]
  - VISUAL IMPAIRMENT [None]
